FAERS Safety Report 10917648 (Version 1)
Quarter: 2015Q1

REPORT INFORMATION
  Report Type: Spontaneous
  Country: US (occurrence: None)
  Receive Date: 20150312
  Receipt Date: 20150312
  Transmission Date: 20150721
  Serious: Yes (Life-Threatening, Hospitalization)
  Sender: FDA-Public Use
  Company Number: None

PATIENT
  Age: 87 Year
  Sex: Male
  Weight: 74.84 kg

DRUGS (10)
  1. ALEVE [Concomitant]
     Active Substance: NAPROXEN SODIUM
  2. PACEMAKER [Concomitant]
  3. CHELATED IRON [Concomitant]
  4. FISH OIL [Concomitant]
     Active Substance: FISH OIL
  5. BIZ [Concomitant]
  6. CENTRUM [Concomitant]
     Active Substance: VITAMINS
  7. BAYER ASPIRIN [Concomitant]
     Active Substance: ASPIRIN
  8. ELIQUIS [Suspect]
     Active Substance: APIXABAN
     Indication: ANTICOAGULANT THERAPY
     Dosage: ? AM ? PM TWICE MOUTH
     Route: 048
     Dates: start: 20141211, end: 20150209
  9. CHOAZEPAM [Concomitant]
  10. PACERONE [Concomitant]
     Active Substance: AMIODARONE HYDROCHLORIDE

REACTIONS (1)
  - Rectal haemorrhage [None]

NARRATIVE: CASE EVENT DATE: 20150205
